FAERS Safety Report 23507902 (Version 1)
Quarter: 2024Q1

REPORT INFORMATION
  Report Type: Spontaneous
  Country: US (occurrence: US)
  Receive Date: 20240209
  Receipt Date: 20240209
  Transmission Date: 20240409
  Serious: Yes (Death, Other)
  Sender: FDA-Public Use
  Company Number: US-BEH-2024168056

PATIENT
  Sex: Female
  Weight: 2.86 kg

DRUGS (1)
  1. HUMAN RHO(D) IMMUNE GLOBULIN [Suspect]
     Active Substance: HUMAN RHO(D) IMMUNE GLOBULIN
     Indication: Product used for unknown indication
     Route: 064

REACTIONS (31)
  - Isoimmune haemolytic disease [Fatal]
  - Foetal exposure during pregnancy [Fatal]
  - Hyperbilirubinaemia [Fatal]
  - Anaemia [Fatal]
  - Foetal exposure during pregnancy [Unknown]
  - Vomiting [Unknown]
  - Diarrhoea [Unknown]
  - Foetal exposure during pregnancy [Unknown]
  - Nausea [Unknown]
  - Foetal exposure during pregnancy [Unknown]
  - Lethargy [Fatal]
  - Jaundice [Fatal]
  - Infantile apnoea [Fatal]
  - Tachycardia [Fatal]
  - Tachypnoea [Fatal]
  - Haemoglobinuria [Fatal]
  - Haematocrit decreased [Fatal]
  - Hypotension [Fatal]
  - Haemolysis [Fatal]
  - Thrombocytopenia neonatal [Fatal]
  - Coagulopathy [Fatal]
  - Acidosis [Fatal]
  - Haemodynamic instability [Fatal]
  - Multiple organ dysfunction syndrome [Fatal]
  - Foetal exposure during pregnancy [Fatal]
  - Disseminated intravascular coagulation in newborn [Fatal]
  - Foetal exposure during pregnancy [Fatal]
  - Renal failure [Fatal]
  - Foetal exposure during pregnancy [Fatal]
  - Shock [Fatal]
  - Foetal exposure during pregnancy [Fatal]
